FAERS Safety Report 18266329 (Version 1)
Quarter: 2020Q3

REPORT INFORMATION
  Report Type: Spontaneous
  Country: JP (occurrence: JP)
  Receive Date: 20200915
  Receipt Date: 20200915
  Transmission Date: 20201103
  Serious: Yes (Hospitalization)
  Sender: FDA-Public Use
  Company Number: JP-VIFOR (INTERNATIONAL) INC.-VIT-2020-05458

PATIENT
  Age: 86 Year
  Sex: Female

DRUGS (32)
  1. MIRCERA [Suspect]
     Active Substance: METHOXY POLYETHYLENE GLYCOL-EPOETIN BETA
     Route: 042
     Dates: start: 20191004, end: 20191004
  2. MIRCERA [Suspect]
     Active Substance: METHOXY POLYETHYLENE GLYCOL-EPOETIN BETA
     Route: 042
     Dates: start: 20191221, end: 20191221
  3. MIRCERA [Suspect]
     Active Substance: METHOXY POLYETHYLENE GLYCOL-EPOETIN BETA
     Route: 042
     Dates: start: 20200116, end: 20200703
  4. MIRCERA [Suspect]
     Active Substance: METHOXY POLYETHYLENE GLYCOL-EPOETIN BETA
     Route: 042
     Dates: start: 20190823, end: 20190823
  5. MIRCERA [Suspect]
     Active Substance: METHOXY POLYETHYLENE GLYCOL-EPOETIN BETA
     Route: 042
     Dates: start: 20191018, end: 20191018
  6. MIRCERA [Suspect]
     Active Substance: METHOXY POLYETHYLENE GLYCOL-EPOETIN BETA
     Route: 042
     Dates: start: 20200508
  7. LYRICA [Concomitant]
     Active Substance: PREGABALIN
     Dosage: AFTER DINNER
     Route: 048
  8. THYRADIN?S [Concomitant]
     Active Substance: LEVOTHYROXINE
     Dosage: AFTER BREAKFAST
     Route: 048
  9. MIRCERA [Suspect]
     Active Substance: METHOXY POLYETHYLENE GLYCOL-EPOETIN BETA
     Route: 042
     Dates: start: 20191101, end: 20191101
  10. MIRCERA [Suspect]
     Active Substance: METHOXY POLYETHYLENE GLYCOL-EPOETIN BETA
     Route: 042
     Dates: start: 20200731, end: 20200731
  11. MIRCERA [Suspect]
     Active Substance: METHOXY POLYETHYLENE GLYCOL-EPOETIN BETA
     Route: 042
     Dates: start: 20200703
  12. ZOLPIDEM TARTRATE. [Concomitant]
     Active Substance: ZOLPIDEM TARTRATE
     Dosage: BEFORE GOING TO BED
     Route: 048
  13. SUMILU STICK [Concomitant]
     Active Substance: FELBINAC
     Dosage: SEVERAL TIMES A DAY, WHOLE BODY
     Route: 061
  14. BELSOMRA [Concomitant]
     Active Substance: SUVOREXANT
     Dosage: BEFORE GOING TO BED
     Route: 048
  15. ATELEC [Concomitant]
     Active Substance: CILNIDIPINE
     Dosage: AFTER BREAKFAST
     Route: 048
  16. RELVAR [Concomitant]
     Active Substance: FLUTICASONE FUROATE\VILANTEROL TRIFENATATE
     Dosage: ONCE?DAILY INHALATION
     Route: 048
  17. LOCOID [Concomitant]
     Active Substance: HYDROCORTISONE BUTYRATE
     Dosage: APPLICATION SEVERAL TIMES A DAY, ITCHY SITE
     Route: 061
  18. FUROSEMIDE. [Concomitant]
     Active Substance: FUROSEMIDE
     Route: 042
     Dates: start: 2020
  19. CALONAL [Concomitant]
     Active Substance: ACETAMINOPHEN
     Dosage: BEFORE GOING TO BED
     Route: 048
  20. MAGNESIUM OXIDE. [Concomitant]
     Active Substance: MAGNESIUM OXIDE
     Dosage: AFTER BREAKFAST AND DINNER
     Route: 048
  21. EDIROL [Concomitant]
     Active Substance: ELDECALCITOL
     Dosage: AFTER THE BREAKFAST
     Route: 048
  22. FEBURIC [Concomitant]
     Active Substance: FEBUXOSTAT
     Dosage: AFTER BREAKFAST
     Route: 048
  23. CANDESARTAN. [Concomitant]
     Active Substance: CANDESARTAN
     Route: 048
  24. HEPARINOID [Concomitant]
     Active Substance: CHONDROITIN SULFATE (BOVINE)
     Dosage: APPLY TO THE LOWER EXTREMITIES SEVERAL TIMES A DAY
     Route: 061
  25. MIRCERA [Suspect]
     Active Substance: METHOXY POLYETHYLENE GLYCOL-EPOETIN BETA
     Indication: PRODUCT USED FOR UNKNOWN INDICATION
     Route: 042
     Dates: start: 20190809, end: 20190809
  26. SUMILU STICK [Concomitant]
     Active Substance: FELBINAC
     Route: 061
  27. MIRCERA [Suspect]
     Active Substance: METHOXY POLYETHYLENE GLYCOL-EPOETIN BETA
     Route: 042
     Dates: start: 20190906, end: 20190906
  28. MIRCERA [Suspect]
     Active Substance: METHOXY POLYETHYLENE GLYCOL-EPOETIN BETA
     Route: 042
     Dates: start: 20200410
  29. ROSUVASTATIN OD [Concomitant]
     Dosage: AFTER BREAKFAST
     Route: 048
  30. MIRCERA [Suspect]
     Active Substance: METHOXY POLYETHYLENE GLYCOL-EPOETIN BETA
     Route: 042
     Dates: start: 20191125, end: 20191125
  31. MIRCERA [Suspect]
     Active Substance: METHOXY POLYETHYLENE GLYCOL-EPOETIN BETA
     Route: 042
     Dates: start: 20200605
  32. TAKECAB [Concomitant]
     Active Substance: VONOPRAZAN FUMARATE
     Dosage: AFTER BREAKFAST
     Route: 048

REACTIONS (12)
  - Oedema peripheral [Unknown]
  - Gastric antral vascular ectasia [Unknown]
  - Weight increased [Unknown]
  - Anaemia [Recovering/Resolving]
  - Pallor [Unknown]
  - Hypochromic anaemia [Unknown]
  - Haemoglobin decreased [Unknown]
  - Dizziness [Unknown]
  - Condition aggravated [Unknown]
  - Face oedema [Unknown]
  - Conjunctival pallor [Unknown]
  - Condition aggravated [Unknown]

NARRATIVE: CASE EVENT DATE: 20190822
